FAERS Safety Report 25688903 (Version 3)
Quarter: 2025Q3

REPORT INFORMATION
  Report Type: Spontaneous
  Country: JP (occurrence: JP)
  Receive Date: 20250818
  Receipt Date: 20250905
  Transmission Date: 20251020
  Serious: No
  Sender: JOHNSON AND JOHNSON
  Company Number: JP-JNJFOC-20250820303

PATIENT
  Age: 7 Decade
  Sex: Female

DRUGS (7)
  1. RYBREVANT [Suspect]
     Active Substance: AMIVANTAMAB-VMJW
     Indication: EGFR gene mutation
     Dosage: DAY1
     Route: 041
     Dates: start: 20250805, end: 20250805
  2. RYBREVANT [Suspect]
     Active Substance: AMIVANTAMAB-VMJW
     Dosage: DAY8
     Route: 041
     Dates: start: 20250812, end: 20250812
  3. RYBREVANT [Suspect]
     Active Substance: AMIVANTAMAB-VMJW
     Dosage: CYCLE2DAY2
     Route: 041
     Dates: start: 20250826, end: 20250826
  4. CARBOPLATIN [Suspect]
     Active Substance: CARBOPLATIN
     Indication: EGFR gene mutation
     Dosage: AUC5
     Route: 041
     Dates: start: 20250805, end: 20250805
  5. CARBOPLATIN [Suspect]
     Active Substance: CARBOPLATIN
     Route: 041
     Dates: start: 20250826
  6. PEMETREXED [Suspect]
     Active Substance: PEMETREXED
     Indication: EGFR gene mutation
     Route: 041
     Dates: start: 20250805, end: 20250805
  7. PEMETREXED [Suspect]
     Active Substance: PEMETREXED
     Route: 041
     Dates: start: 20250826

REACTIONS (2)
  - Platelet count decreased [Recovering/Resolving]
  - Rash [Unknown]

NARRATIVE: CASE EVENT DATE: 20250812
